FAERS Safety Report 24718246 (Version 1)
Quarter: 2024Q4

REPORT INFORMATION
  Report Type: Report from Study
  Country: BR (occurrence: BR)
  Receive Date: 20241210
  Receipt Date: 20241210
  Transmission Date: 20250115
  Serious: Yes (Death)
  Sender: PFIZER
  Company Number: BR-PFIZER INC-PV202400160344

PATIENT

DRUGS (1)
  1. METHOTREXATE SODIUM [Suspect]
     Active Substance: METHOTREXATE SODIUM
     Indication: Immunosuppression
     Dosage: HIGH DOSE

REACTIONS (1)
  - Toxicity to various agents [Fatal]
